FAERS Safety Report 25392757 (Version 1)
Quarter: 2025Q2

REPORT INFORMATION
  Report Type: Report from Study
  Country: US (occurrence: US)
  Receive Date: 20250603
  Receipt Date: 20250603
  Transmission Date: 20250716
  Serious: No
  Sender: MALLINCKRODT
  Company Number: US-MALLINCKRODT-MNK202502888

PATIENT
  Sex: Female

DRUGS (2)
  1. CORTICOTROPIN [Suspect]
     Active Substance: CORTICOTROPIN
     Indication: Sarcoidosis
     Dosage: 80 UNITS
     Dates: start: 20241030
  2. OXYGEN [Concomitant]
     Active Substance: OXYGEN

REACTIONS (5)
  - Nervousness [Unknown]
  - Anxiety [Unknown]
  - Poor quality sleep [Unknown]
  - Depressed mood [Unknown]
  - Injection site bruising [Unknown]
